FAERS Safety Report 6065825-8 (Version None)
Quarter: 2009Q1

REPORT INFORMATION
  Report Type: 
  Country: None (occurrence: None)
  Receive Date: 20090205
  Receipt Date: 20090128
  Transmission Date: 20090719
  Serious: Yes (Hospitalization, Other)
  Sender: FDA-Public Use
  Company Number: US-JNJFOC-20081200809

PATIENT
  Sex: Female
  Weight: 78.93 kg

DRUGS (13)
  1. LEVAQUIN [Suspect]
     Indication: URINARY TRACT INFECTION
     Route: 048
  2. COREG [Concomitant]
     Indication: BLOOD PRESSURE
     Route: 048
  3. SYNTHROID [Concomitant]
     Dosage: ON TUESDAYS ONLY
     Route: 048
  4. SYNTHROID [Concomitant]
     Indication: HYPOTHYROIDISM
     Route: 048
  5. CLARITIN [Concomitant]
     Indication: MULTIPLE ALLERGIES
     Route: 048
  6. ASPIRIN [Concomitant]
     Route: 048
  7. PEPCID [Concomitant]
     Dosage: AS NEEDED
     Route: 065
  8. CALCIUM/MAGNESIUM [Concomitant]
     Route: 065
  9. VITAMIN E [Concomitant]
     Route: 065
  10. MULTI-VITAMINS [Concomitant]
     Route: 065
  11. TOPROL-XL [Concomitant]
     Route: 048
  12. CROMOLYN SODIUM [Concomitant]
     Route: 065
  13. PEPCID AC [Concomitant]
     Indication: GASTROOESOPHAGEAL REFLUX DISEASE
     Route: 065

REACTIONS (3)
  - DYSPNOEA [None]
  - EJECTION FRACTION DECREASED [None]
  - MUSCULOSKELETAL DISCOMFORT [None]
